FAERS Safety Report 5202509-X (Version None)
Quarter: 2006Q4

REPORT INFORMATION
  Report Type: 
  Country: None (occurrence: None)
  Receive Date: 20061016
  Receipt Date: 20060907
  Transmission Date: 20070319
  Serious: No
  Sender: FDA-Public Use
  Company Number: 2006SP003220

PATIENT
  Age: 74 Year
  Sex: Female
  Weight: 62.5964 kg

DRUGS (6)
  1. LUNESTA [Suspect]
     Indication: INSOMNIA
     Dosage: 3 MG;1X; ORAL
     Route: 048
     Dates: start: 20060701, end: 20060701
  2. LUNESTA [Suspect]
     Indication: INSOMNIA
     Dosage: 3 MG;1X; ORAL
     Route: 048
     Dates: start: 20060801, end: 20060801
  3. ATORVASTATIN CALCIUM [Concomitant]
  4. CYMBALTA [Concomitant]
  5. VITAMIN CAP [Concomitant]
  6. CALCIUM [Concomitant]

REACTIONS (3)
  - DRY MOUTH [None]
  - DYSGEUSIA [None]
  - INSOMNIA [None]
